FAERS Safety Report 8488794-X (Version None)
Quarter: 2012Q3

REPORT INFORMATION
  Report Type: 
  Country: None (occurrence: None)
  Receive Date: 20120705
  Receipt Date: 20120629
  Transmission Date: 20120928
  Serious: Yes (Hospitalization, Other)
  Sender: FDA-Public Use
  Company Number: US-PFIZER INC-2012082838

PATIENT
  Sex: Female

DRUGS (3)
  1. IBUPROFEN [Concomitant]
     Indication: ANALGESIC THERAPY
     Dosage: UNK
     Dates: start: 20050101
  2. CHANTIX [Suspect]
     Indication: SMOKING CESSATION THERAPY
     Dosage: UNK
     Dates: start: 20090302, end: 20090401
  3. CHANTIX [Suspect]
     Dosage: UNK
     Dates: start: 20090910, end: 20090901

REACTIONS (7)
  - DEPRESSION [None]
  - ANXIETY [None]
  - PANIC ATTACK [None]
  - ABNORMAL DREAMS [None]
  - INTENTIONAL OVERDOSE [None]
  - PARANOIA [None]
  - SUICIDE ATTEMPT [None]
